FAERS Safety Report 23186053 (Version 2)
Quarter: 2023Q4

REPORT INFORMATION
  Report Type: Report from Study
  Country: US (occurrence: US)
  Receive Date: 20231115
  Receipt Date: 20231120
  Transmission Date: 20240110
  Serious: Yes (Hospitalization, Other)
  Sender: FDA-Public Use
  Company Number: US-EXELIXIS-CABO-23070424

PATIENT
  Age: 33 Year
  Sex: Male

DRUGS (3)
  1. CABOMETYX [Suspect]
     Active Substance: CABOZANTINIB S-MALATE
     Indication: Osteosarcoma
     Dosage: 60 MG
     Dates: start: 20231023, end: 20231024
  2. OXYCODONE [Concomitant]
     Active Substance: OXYCODONE
  3. GABAPENTIN [Concomitant]
     Active Substance: GABAPENTIN

REACTIONS (6)
  - Altered state of consciousness [Unknown]
  - Vascular compression [Unknown]
  - Brain neoplasm [Unknown]
  - Asthenia [Unknown]
  - Apathy [Unknown]
  - Off label use [Unknown]

NARRATIVE: CASE EVENT DATE: 20231001
